FAERS Safety Report 5128945-8 (Version None)
Quarter: 2006Q4

REPORT INFORMATION
  Report Type: 
  Country: None (occurrence: None)
  Receive Date: 20061017
  Receipt Date: 20060424
  Transmission Date: 20070319
  Serious: Yes (Other)
  Sender: FDA-Public Use
  Company Number: PHBS2006IE05884

PATIENT
  Sex: Female

DRUGS (1)
  1. ZOMETA [Suspect]
     Indication: BREAST CANCER METASTATIC

REACTIONS (2)
  - ABSCESS JAW [None]
  - OSTEONECROSIS [None]
